FAERS Safety Report 16644630 (Version 1)
Quarter: 2019Q3

REPORT INFORMATION
  Report Type: Spontaneous
  Country: DE (occurrence: DE)
  Receive Date: 20190729
  Receipt Date: 20190729
  Transmission Date: 20191004
  Serious: Yes (Hospitalization)
  Sender: FDA-Public Use
  Company Number: DE-MYLANLABS-PHNU2003DE02112

PATIENT
  Age: 2 Year
  Sex: Female

DRUGS (1)
  1. PRAVIDEL (BROMOCRIPTINE MESYLATE) [Suspect]
     Active Substance: BROMOCRIPTINE MESYLATE
     Indication: PRODUCT USED FOR UNKNOWN INDICATION
     Dosage: 10 MG, ONCE/SINGLE
     Route: 048
     Dates: start: 20030525, end: 20030525

REACTIONS (4)
  - Somnolence [Recovering/Resolving]
  - Medication error [Unknown]
  - Vomiting [Recovering/Resolving]
  - Accidental exposure to product [Recovering/Resolving]

NARRATIVE: CASE EVENT DATE: 20030525
